FAERS Safety Report 24936550 (Version 6)
Quarter: 2025Q4

REPORT INFORMATION
  Report Type: Spontaneous
  Country: US (occurrence: US)
  Receive Date: 20250206
  Receipt Date: 20251019
  Transmission Date: 20260118
  Serious: No
  Sender: TRAVERE THERAPEUTICS
  Company Number: US-TRAVERE-2025TVT00128

PATIENT
  Age: 54 Year
  Sex: Male

DRUGS (2)
  1. FILSPARI [Suspect]
     Active Substance: SPARSENTAN
     Indication: IgA nephropathy
     Dosage: 1 TABLET BY MOUTH, ONCE A DAILY FOR DAYS 1-14
     Route: 048
     Dates: start: 202501
  2. FILSPARI [Suspect]
     Active Substance: SPARSENTAN
     Dosage: 2 TABLETS BY MOUTH, ONCE A DAILY ON DAYS 15-30.?EXPIRY DATE: 30-MAY-2026
     Route: 048
     Dates: start: 2025

REACTIONS (10)
  - Decreased appetite [Unknown]
  - Upper respiratory tract infection [Unknown]
  - Pruritus [None]
  - Fatigue [None]
  - Muscle fatigue [Unknown]
  - Abdominal pain upper [Recovered/Resolved]
  - Pollakiuria [Unknown]
  - Chromaturia [Unknown]
  - Laboratory test abnormal [None]
  - Blood creatinine increased [None]

NARRATIVE: CASE EVENT DATE: 20250401
